FAERS Safety Report 4390755-7 (Version None)
Quarter: 2004Q3

REPORT INFORMATION
  Report Type: 
  Country: None (occurrence: None)
  Receive Date: 20040706
  Receipt Date: 20040706
  Transmission Date: 20050211
  Serious: Yes (Hospitalization)
  Sender: FDA-Public Use
  Company Number: None

PATIENT
  Age: 56 Year
  Sex: Female
  Weight: 77.47 kg

DRUGS (12)
  1. PRECOSE [Suspect]
     Indication: DIABETES MELLITUS
     Dosage: 100 MG TID PO
     Route: 048
  2. NOVOLIN 70/30 [Suspect]
     Indication: DIABETES MELLITUS
     Dosage: 40 UNITS AM, 30 UNITS PM SQ
     Route: 058
  3. CELEBREX [Concomitant]
  4. DIOVAN [Concomitant]
  5. LORATADINE [Concomitant]
  6. NEXIUM [Concomitant]
  7. PLAVIX [Concomitant]
  8. ENALAPRIL MALEATE [Concomitant]
  9. SEROQUEL [Concomitant]
  10. LEXAPRO [Concomitant]
  11. AMITRIPTYLINE HCL [Concomitant]
  12. ZOCOR [Concomitant]

REACTIONS (2)
  - DEPRESSED LEVEL OF CONSCIOUSNESS [None]
  - HYPOGLYCAEMIA [None]
